FAERS Safety Report 7029534-0 (Version None)
Quarter: 2010Q3

REPORT INFORMATION
  Report Type: 
  Country: None (occurrence: None)
  Receive Date: 20100930
  Receipt Date: 20100920
  Transmission Date: 20110219
  Serious: Yes (Other)
  Sender: FDA-Public Use
  Company Number: 201009017

PATIENT
  Age: 61 Year
  Sex: Male
  Weight: 79.3795 kg

DRUGS (10)
  1. TESTIM [Suspect]
     Indication: BLOOD TESTOSTERONE DECREASED
     Dosage: SEE IMAGE
     Route: 062
     Dates: start: 20070101
  2. TESTIM [Suspect]
     Indication: BLOOD TESTOSTERONE DECREASED
     Dosage: SEE IMAGE
     Route: 062
     Dates: start: 20100801
  3. LANSOPRAZOLE DR (LANSOPRAZOLE) [Concomitant]
  4. ENALAPRIL MALEATE [Concomitant]
  5. TAMSULOSIN HCL (TAMSULOSIN HYDROCHLORIDE) [Concomitant]
  6. VYTORIN [Concomitant]
  7. TRILIPIX (FENOFIBRATE) [Concomitant]
  8. AMERICAN GINSENG (GINSENG NOS) [Concomitant]
  9. TRIBULUS (VITAMINS NOS) [Concomitant]
  10. 5 HOUR ENERGY DRINK (NULL) [Concomitant]

REACTIONS (3)
  - BLOOD TESTOSTERONE DECREASED [None]
  - BLOOD TESTOSTERONE INCREASED [None]
  - PROSTATE CANCER [None]
